FAERS Safety Report 10239497 (Version 2)
Quarter: 2014Q2

REPORT INFORMATION
  Report Type: Report from Study
  Country: JP (occurrence: JP)
  Receive Date: 20140616
  Receipt Date: 20140616
  Transmission Date: 20141212
  Serious: Yes (Other)
  Sender: FDA-Public Use
  Company Number: JP-ASTELLAS-2014JP002864

PATIENT
  Age: 24 Year
  Sex: Male
  Weight: 63 kg

DRUGS (9)
  1. TACROLIMUS [Suspect]
     Indication: PROPHYLAXIS AGAINST TRANSPLANT REJECTION
     Route: 048
     Dates: start: 20101025, end: 20101027
  2. TACROLIMUS [Suspect]
     Dosage: 4-9MG/DAY
     Route: 048
     Dates: start: 20101031
  3. PROGRAF [Concomitant]
     Indication: PROPHYLAXIS AGAINST TRANSPLANT REJECTION
     Dosage: 2.5-1.25 MG/DAY
     Route: 065
     Dates: start: 20101028, end: 20101030
  4. METHYLPREDNISOLONE                 /00049602/ [Concomitant]
     Indication: PROPHYLAXIS AGAINST TRANSPLANT REJECTION
     Route: 042
     Dates: start: 20101028, end: 20101028
  5. MEDROL                             /00049601/ [Concomitant]
     Indication: PROPHYLAXIS AGAINST TRANSPLANT REJECTION
     Dosage: 2-24MG/DAY
     Route: 048
     Dates: start: 20101029
  6. CELLCEPT                           /01275102/ [Concomitant]
     Indication: PROPHYLAXIS AGAINST TRANSPLANT REJECTION
     Route: 048
  7. SIMULECT [Concomitant]
     Indication: PROPHYLAXIS AGAINST TRANSPLANT REJECTION
     Route: 042
     Dates: start: 20101028, end: 20101028
  8. SIMULECT [Concomitant]
     Route: 042
     Dates: start: 20101101, end: 20101101
  9. PREDNISOLONE [Concomitant]
     Indication: PROPHYLAXIS AGAINST TRANSPLANT REJECTION
     Route: 048

REACTIONS (1)
  - IgA nephropathy [Not Recovered/Not Resolved]
